FAERS Safety Report 9459500 (Version 2)
Quarter: 2013Q3

REPORT INFORMATION
  Report Type: Spontaneous
  Country: US (occurrence: US)
  Receive Date: 20130815
  Receipt Date: 20130910
  Transmission Date: 20140515
  Serious: No
  Sender: FDA-Public Use
  Company Number: US-PFIZER INC-2013234616

PATIENT
  Age: 67 Year
  Sex: Female

DRUGS (15)
  1. AROMASIN [Suspect]
     Indication: BREAST CANCER
     Dosage: 25 MG, DAILY
     Route: 048
     Dates: start: 20100925, end: 20130625
  2. AROMASIN [Suspect]
     Indication: BREAST DISORDER
  3. AMLODIPINE BESYLATE [Concomitant]
     Dosage: 5 MG, 1X/DAY
     Route: 048
     Dates: start: 20100218
  4. ASPIRIN [Concomitant]
     Dosage: 81 MG, 1X/DAY
     Route: 048
     Dates: start: 20070209
  5. ATORVASTATIN CALCIUM [Concomitant]
     Dosage: 10 MG, 1X/DAY
     Route: 048
     Dates: start: 20120719
  6. CALCIUM  D [Concomitant]
     Dosage: 1 DF, 2X/DAY
  7. CITALOPRAM HYDROBROMIDE [Concomitant]
     Dosage: 40 MG, 1X/DAY
     Route: 048
  8. FISH OIL [Concomitant]
     Dosage: 1000 MG, 2X/DAY
     Route: 048
  9. INSULIN [Concomitant]
     Dosage: UNK, AS DIRECTED
     Dates: start: 20120817
  10. LANTUS [Concomitant]
     Dosage: 35 IU, 1X/DAY
     Route: 058
     Dates: start: 20120817
  11. LOSARTAN POTASSIUM [Concomitant]
     Dosage: 50 MG, 1X/DAY (AS DIRECTED)
     Route: 048
  12. METFORMIN HYDROCHLORIDE [Concomitant]
     Dosage: 1000 MG, 2X/DAY (WITH MEALS)
     Route: 048
     Dates: start: 20120719
  13. OMEPRAZOLE [Concomitant]
     Dosage: 40 MG, 1X/DAY
     Route: 048
  14. TAMOXIFEN CITRATE [Concomitant]
     Dosage: 20 MG, 1X/DAY
     Route: 048
     Dates: start: 20130725
  15. VITAMIN D [Concomitant]
     Dosage: 1000 IU, 1X/DAY
     Route: 048

REACTIONS (2)
  - Pain [Unknown]
  - Arthralgia [Recovered/Resolved]
